FAERS Safety Report 5598251-6 (Version None)
Quarter: 2008Q1

REPORT INFORMATION
  Report Type: 
  Country: None (occurrence: None)
  Receive Date: 20080122
  Receipt Date: 20080108
  Transmission Date: 20080703
  Serious: Yes (Disabling, Other)
  Sender: FDA-Public Use
  Company Number: GB-AMGEN-UK260414

PATIENT
  Age: 77 Year
  Sex: Female
  Weight: 76.5 kg

DRUGS (12)
  1. ARANESP [Suspect]
     Indication: DIALYSIS
     Route: 042
     Dates: start: 20071201, end: 20071201
  2. ALFACALCIDOL [Concomitant]
  3. AMLODIPINE [Concomitant]
  4. ASPIRIN [Concomitant]
     Route: 048
  5. ATORVASTATIN [Concomitant]
     Route: 048
  6. FOLIC ACID [Concomitant]
     Route: 048
  7. INSULIN [Concomitant]
  8. RAMIPRIL [Concomitant]
  9. SEVELAMER HCL [Concomitant]
  10. VENOFER [Concomitant]
     Route: 042
  11. ASCORBIC ACID [Concomitant]
     Route: 048
  12. VITAMIN B [Concomitant]
     Route: 048

REACTIONS (2)
  - HYPOTENSION [None]
  - LOSS OF CONSCIOUSNESS [None]
